FAERS Safety Report 9955681 (Version 1)
Quarter: 2014Q1

REPORT INFORMATION
  Report Type: Report from Study
  Country: US (occurrence: US)
  Receive Date: 20140304
  Receipt Date: 20140304
  Transmission Date: 20141002
  Serious: No
  Sender: FDA-Public Use
  Company Number: US-ABBVIE-13P-163-1074841-00

PATIENT
  Sex: Female
  Weight: 118.04 kg

DRUGS (6)
  1. HUMIRA [Suspect]
     Indication: CROHN^S DISEASE
     Dates: start: 20130315
  2. DEMEROL [Concomitant]
     Indication: PRODUCT USED FOR UNKNOWN INDICATION
  3. CIPROMAX [Concomitant]
     Indication: PRODUCT USED FOR UNKNOWN INDICATION
  4. ADVAIR [Concomitant]
     Indication: PRODUCT USED FOR UNKNOWN INDICATION
  5. MELATONIN [Concomitant]
     Indication: PRODUCT USED FOR UNKNOWN INDICATION
  6. UNKNOWN PAIN MEDICATION [Concomitant]
     Indication: PRODUCT USED FOR UNKNOWN INDICATION

REACTIONS (3)
  - Fatigue [Not Recovered/Not Resolved]
  - Pain [Not Recovered/Not Resolved]
  - Drug ineffective [Not Recovered/Not Resolved]
